FAERS Safety Report 18909508 (Version 1)
Quarter: 2021Q1

REPORT INFORMATION
  Report Type: Spontaneous
  Country: US (occurrence: US)
  Receive Date: 20210218
  Receipt Date: 20210218
  Transmission Date: 20210420
  Serious: Yes (Hospitalization)
  Sender: FDA-Public Use
  Company Number: None

PATIENT
  Age: 77 Year
  Sex: Male

DRUGS (1)
  1. METHOTREXATE 2.5MG HIKMA [Suspect]
     Active Substance: METHOTREXATE
     Indication: LYMPHOCYTIC LEUKAEMIA
     Route: 048
     Dates: start: 20191108

REACTIONS (1)
  - Pyrexia [None]

NARRATIVE: CASE EVENT DATE: 20210213
